FAERS Safety Report 8296119-8 (Version None)
Quarter: 2012Q2

REPORT INFORMATION
  Report Type: 
  Country: None (occurrence: None)
  Receive Date: 20120418
  Receipt Date: 20120412
  Transmission Date: 20120825
  Serious: Yes (Other)
  Sender: FDA-Public Use
  Company Number: US-GLAXOSMITHKLINE-A0973915A

PATIENT
  Age: 19 Year
  Sex: Male

DRUGS (2)
  1. LAMICTAL [Suspect]
     Indication: PRODUCT USED FOR UNKNOWN INDICATION
     Route: 065
  2. KEPPRA [Suspect]
     Indication: PRODUCT USED FOR UNKNOWN INDICATION
     Route: 065

REACTIONS (7)
  - HOMICIDE [None]
  - CONVULSION [None]
  - AGITATION [None]
  - AGGRESSION [None]
  - ANGER [None]
  - UNEVALUABLE EVENT [None]
  - SCREAMING [None]
